FAERS Safety Report 14418337 (Version 1)
Quarter: 2018Q1

REPORT INFORMATION
  Report Type: Spontaneous
  Country: US (occurrence: US)
  Receive Date: 20180122
  Receipt Date: 20180122
  Transmission Date: 20180509
  Serious: No
  Sender: FDA-Public Use
  Company Number: US-INTERCEPT-PMOCA2017001278

PATIENT

DRUGS (2)
  1. OCALIVA [Suspect]
     Active Substance: OBETICHOLIC ACID
     Indication: BILIARY CIRRHOSIS
     Dosage: 5 MG, UNK
  2. OCALIVA [Suspect]
     Active Substance: OBETICHOLIC ACID
     Dosage: 10 MG, QD
     Route: 048

REACTIONS (4)
  - Hot flush [Recovered/Resolved]
  - Upper-airway cough syndrome [Unknown]
  - Increased appetite [Recovered/Resolved]
  - Weight increased [Recovered/Resolved]
